FAERS Safety Report 19611067 (Version 1)
Quarter: 2021Q3

REPORT INFORMATION
  Report Type: Spontaneous
  Country: DE (occurrence: DE)
  Receive Date: 20210726
  Receipt Date: 20210726
  Transmission Date: 20211014
  Serious: Yes (Other)
  Sender: FDA-Public Use
  Company Number: NVSC2021DE157319

PATIENT
  Age: 18 Year
  Sex: Female

DRUGS (9)
  1. BUPROPION. [Suspect]
     Active Substance: BUPROPION
     Indication: PRODUCT USED FOR UNKNOWN INDICATION
     Dosage: 150 MG, QD
     Route: 065
     Dates: start: 20200908, end: 20200914
  2. VENLAFAXINA RETARD SALUTAS [Interacting]
     Active Substance: VENLAFAXINE HYDROCHLORIDE
     Dosage: 150 MG, QD
     Route: 065
     Dates: end: 20200831
  3. VENLAFAXINA RETARD SALUTAS [Interacting]
     Active Substance: VENLAFAXINE HYDROCHLORIDE
     Dosage: 18.75 MG, QD
     Route: 065
     Dates: start: 20200928
  4. VENLAFAXINA RETARD SALUTAS [Interacting]
     Active Substance: VENLAFAXINE HYDROCHLORIDE
     Indication: PRODUCT USED FOR UNKNOWN INDICATION
     Dosage: 150 MG, QD
     Route: 065
     Dates: start: 20200908, end: 20200917
  5. VENLAFAXINA RETARD SALUTAS [Interacting]
     Active Substance: VENLAFAXINE HYDROCHLORIDE
     Dosage: 37.5 MG, QD
     Route: 065
     Dates: start: 20200923, end: 20200927
  6. VALPROAT [Concomitant]
     Active Substance: VALPROATE SODIUM
     Indication: PRODUCT USED FOR UNKNOWN INDICATION
     Dosage: 150 MG, QD
     Route: 065
     Dates: end: 20200824
  7. VENLAFAXINA RETARD SALUTAS [Interacting]
     Active Substance: VENLAFAXINE HYDROCHLORIDE
     Dosage: 225 MG, QD
     Route: 065
     Dates: start: 20200901, end: 20200907
  8. BUPROPION. [Interacting]
     Active Substance: BUPROPION
     Dosage: 300 MG, QD
     Route: 065
     Dates: start: 20200915
  9. VENLAFAXINA RETARD SALUTAS [Interacting]
     Active Substance: VENLAFAXINE HYDROCHLORIDE
     Dosage: 75 MG, QD (BEI DIESER DOSIS AUFTRETEN DER UAW)
     Route: 065
     Dates: start: 20200918, end: 20200921

REACTIONS (9)
  - Drug withdrawal syndrome [Recovered/Resolved]
  - Malaise [Recovered/Resolved]
  - Eating disorder [Recovered/Resolved]
  - Head discomfort [Recovered/Resolved]
  - Sleep disorder [Recovered/Resolved]
  - Nausea [Recovered/Resolved]
  - Feeling abnormal [Recovered/Resolved]
  - Crying [Recovered/Resolved]
  - Chest discomfort [Recovered/Resolved]

NARRATIVE: CASE EVENT DATE: 20200922
